FAERS Safety Report 17224198 (Version 1)
Quarter: 2020Q1

REPORT INFORMATION
  Report Type: Spontaneous
  Country: US (occurrence: US)
  Receive Date: 20200102
  Receipt Date: 20200102
  Transmission Date: 20200409
  Serious: No
  Sender: FDA-Public Use
  Company Number: US-BRISTOL-MYERS SQUIBB COMPANY-BMS-2019-124892

PATIENT
  Age: 71 Year
  Sex: Female

DRUGS (1)
  1. OPDIVO [Suspect]
     Active Substance: NIVOLUMAB
     Indication: GALLBLADDER CANCER METASTATIC
     Dosage: UNAVAILABLE
     Route: 065
     Dates: start: 20191224

REACTIONS (3)
  - Asthenia [Unknown]
  - Intentional product use issue [Unknown]
  - Nausea [Unknown]
